FAERS Safety Report 14351736 (Version 1)
Quarter: 2018Q1

REPORT INFORMATION
  Report Type: Spontaneous
  Country: US (occurrence: US)
  Receive Date: 20180103
  Receipt Date: 20180103
  Transmission Date: 20180509
  Serious: No
  Sender: FDA-Public Use
  Company Number: None

PATIENT
  Sex: Female
  Weight: 68.04 kg

DRUGS (1)
  1. FORTEO [Suspect]
     Active Substance: TERIPARATIDE
     Indication: OSTEOPOROSIS
     Route: 058

REACTIONS (9)
  - Confusional state [None]
  - Blood pressure increased [None]
  - Decreased appetite [None]
  - Headache [None]
  - Retching [None]
  - Balance disorder [None]
  - Nausea [None]
  - Constipation [None]
  - Dizziness [None]
